FAERS Safety Report 6517944-7 (Version None)
Quarter: 2009Q4

REPORT INFORMATION
  Report Type: 
  Country: None (occurrence: None)
  Receive Date: 20091224
  Receipt Date: 20091211
  Transmission Date: 20100525
  Serious: Yes (Hospitalization)
  Sender: FDA-Public Use
  Company Number: CA-PFIZER INC-2009309152

PATIENT
  Age: 72 Year
  Sex: Male

DRUGS (9)
  1. SALAZOPYRIN [Suspect]
     Dosage: UNK
     Dates: start: 20090101
  2. AMLODIPINE BESILATE [Concomitant]
  3. ASPIRIN [Concomitant]
  4. ATORVASTATIN CALCIUM [Concomitant]
  5. DOCUSATE SODIUM [Concomitant]
  6. HEPARIN SODIUM [Concomitant]
     Route: 058
  7. LORAZEPAM [Concomitant]
  8. METOPROLOL [Concomitant]
  9. SENNOSIDES [Concomitant]

REACTIONS (1)
  - PANCYTOPENIA [None]
